FAERS Safety Report 14840547 (Version 1)
Quarter: 2018Q2

REPORT INFORMATION
  Report Type: Spontaneous
  Country: GB (occurrence: GB)
  Receive Date: 20180503
  Receipt Date: 20180503
  Transmission Date: 20180711
  Serious: Yes (Other)
  Sender: FDA-Public Use
  Company Number: GB-ACCORD-066396

PATIENT
  Age: 67 Year
  Sex: Female
  Weight: 49 kg

DRUGS (12)
  1. MICONAZOLE. [Concomitant]
     Active Substance: MICONAZOLE
     Dosage: APPLY
     Dates: start: 20171115, end: 20171122
  2. DIAZEPAM. [Concomitant]
     Active Substance: DIAZEPAM
     Dosage: AS DIRECTED
     Dates: start: 20161027
  3. TRAMADOL. [Concomitant]
     Active Substance: TRAMADOL
     Dates: start: 20170627
  4. PARACETAMOL [Concomitant]
     Active Substance: ACETAMINOPHEN
     Dosage: TAKE ONE OR TWO UP TO FOUR TIMES A DAY IF REQUIRED
     Dates: start: 20170802
  5. AMITRIPTYLINE [Suspect]
     Active Substance: AMITRIPTYLINE
     Indication: PRODUCT USED FOR UNKNOWN INDICATION
     Dates: start: 20171115
  6. MORPHINE [Concomitant]
     Active Substance: MORPHINE
     Dosage: USE AS DIRECTED
     Dates: start: 20161005
  7. FLUTICASONE. [Concomitant]
     Active Substance: FLUTICASONE
     Dosage: USE ONE OR TWO SPRAYS ONCE A DAY INTO EACH NOSTRIL
     Route: 045
     Dates: start: 20160316
  8. LORAZEPAM. [Concomitant]
     Active Substance: LORAZEPAM
     Dosage: FOR OCCASSIONALLY
     Dates: start: 20170816
  9. BACLOFEN. [Concomitant]
     Active Substance: BACLOFEN
     Dates: start: 20171124
  10. THIAMINE. [Concomitant]
     Active Substance: THIAMINE
     Dates: start: 20170125
  11. VISCOTEARS [Concomitant]
     Active Substance: CARBOMER
     Dates: start: 20160316
  12. MIRTAZAPINE. [Concomitant]
     Active Substance: MIRTAZAPINE
     Indication: DEPRESSED MOOD
     Dosage: EACH NIGHT.
     Dates: start: 20161103

REACTIONS (2)
  - Swollen tongue [Recovered/Resolved]
  - Mouth swelling [Recovered/Resolved]

NARRATIVE: CASE EVENT DATE: 20171124
